FAERS Safety Report 7653339-0 (Version None)
Quarter: 2011Q3

REPORT INFORMATION
  Report Type: 
  Country: None (occurrence: None)
  Receive Date: 20110803
  Receipt Date: 20110730
  Transmission Date: 20111222
  Serious: Yes (Death)
  Sender: FDA-Public Use
  Company Number: EG-PFIZER INC-2011173703

PATIENT
  Age: 58 Year
  Sex: Male

DRUGS (1)
  1. PIPERACILLIN AND TAZOBACTAM [Suspect]
     Indication: RENAL SURGERY
     Dosage: 4.5 G, 4X/DAY
     Route: 042
     Dates: start: 20110724

REACTIONS (1)
  - SEPTIC SHOCK [None]
